FAERS Safety Report 8980271 (Version 2)
Quarter: 2012Q4

REPORT INFORMATION
  Report Type: 
  Country: AU (occurrence: AU)
  Receive Date: 20121221
  Receipt Date: 20121226
  Transmission Date: 20130627
  Serious: Yes (Other)
  Sender: FDA-Public Use
  Company Number: PHHY2012AU115159

PATIENT
  Age: 50 Year
  Sex: Female

DRUGS (4)
  1. CLOZARIL [Suspect]
     Indication: SCHIZOPHRENIA
     Dosage: 625 mg, Daily
     Dates: start: 200903, end: 201209
  2. ZUCLOPENTHIXOL [Concomitant]
     Dosage: 200 mg, Fortnightly
     Route: 030
  3. VIT D [Concomitant]
     Dosage: 1000 U, daily
  4. MULTIVITAMIN [Concomitant]
     Dosage: 1 DF, daily

REACTIONS (3)
  - Mitral valve incompetence [Unknown]
  - Sinus tachycardia [Unknown]
  - Blood triglycerides increased [Unknown]
